FAERS Safety Report 12933704 (Version 1)
Quarter: 2016Q4

REPORT INFORMATION
  Report Type: Spontaneous
  Country: ES (occurrence: ES)
  Receive Date: 20161111
  Receipt Date: 20161111
  Transmission Date: 20170207
  Serious: Yes (Other)
  Sender: FDA-Public Use
  Company Number: ES-009507513-1611ESP003551

PATIENT
  Age: 89 Year
  Sex: Female

DRUGS (1)
  1. INVANZ [Suspect]
     Active Substance: ERTAPENEM SODIUM
     Indication: CHOLANGITIS ACUTE
     Dosage: 1 G, Q4H
     Route: 042
     Dates: start: 20160927, end: 20161001

REACTIONS (3)
  - Dysphagia [Unknown]
  - Incorrect dosage administered [Unknown]
  - Disorientation [Unknown]

NARRATIVE: CASE EVENT DATE: 20161001
